FAERS Safety Report 6547230-0 (Version None)
Quarter: 2010Q1

REPORT INFORMATION
  Report Type: 
  Country: None (occurrence: None)
  Receive Date: 20100122
  Receipt Date: 20100113
  Transmission Date: 20100710
  Serious: Yes (Death, Other)
  Sender: FDA-Public Use
  Company Number: GB-ASTRAZENECA-2010SE02703

PATIENT
  Age: 0 Week

DRUGS (2)
  1. CRESTOR [Suspect]
     Route: 064
     Dates: end: 20091109
  2. ESCITALOPRAM [Concomitant]
     Route: 064

REACTIONS (1)
  - BRADYCARDIA [None]
